FAERS Safety Report 10150265 (Version 1)
Quarter: 2014Q2

REPORT INFORMATION
  Report Type: Spontaneous
  Country: GB (occurrence: GB)
  Receive Date: 20140502
  Receipt Date: 20140502
  Transmission Date: 20141212
  Serious: Yes (Hospitalization, Disabling)
  Sender: FDA-Public Use
  Company Number: GB-UCBSA-119291

PATIENT
  Age: 67 Year
  Sex: Male
  Weight: 92 kg

DRUGS (11)
  1. CIMZIA [Suspect]
     Indication: SERONEGATIVE ARTHRITIS
     Route: 030
     Dates: start: 20140122, end: 20140318
  2. ALFUZOSIN [Concomitant]
  3. BISOPROLOL [Concomitant]
  4. CALCIUM CARBONATE [Concomitant]
  5. FUROSEMIDE [Concomitant]
  6. LISINOPRIL [Concomitant]
  7. METFORMIN [Concomitant]
  8. METHOTREXATE [Concomitant]
     Indication: SERONEGATIVE ARTHRITIS
     Dates: end: 20140312
  9. PARACETAMOL [Concomitant]
  10. PREGABALIN [Concomitant]
  11. SIMVASTATIN [Concomitant]

REACTIONS (6)
  - Alveolitis [Not Recovered/Not Resolved]
  - Pneumonitis [Not Recovered/Not Resolved]
  - Productive cough [Recovered/Resolved]
  - Dyspnoea [Unknown]
  - Wheezing [Unknown]
  - Incorrect route of drug administration [Not Recovered/Not Resolved]
